FAERS Safety Report 9904323 (Version 1)
Quarter: 2014Q1

REPORT INFORMATION
  Report Type: Spontaneous
  Country: US (occurrence: US)
  Receive Date: 20140218
  Receipt Date: 20140218
  Transmission Date: 20141002
  Serious: No
  Sender: FDA-Public Use
  Company Number: US-PFIZER INC-2014042789

PATIENT
  Sex: Male

DRUGS (1)
  1. PREMARIN [Suspect]
     Dosage: UNK

REACTIONS (4)
  - Wrong drug administered [Unknown]
  - Penile size reduced [Unknown]
  - Erectile dysfunction [Unknown]
  - Sexual dysfunction [Unknown]
